FAERS Safety Report 7861199-8 (Version None)
Quarter: 2011Q4

REPORT INFORMATION
  Report Type: 
  Country: None (occurrence: None)
  Receive Date: 20111027
  Receipt Date: 20111017
  Transmission Date: 20120403
  Serious: Yes (Hospitalization, Other)
  Sender: FDA-Public Use
  Company Number: KR-ELI_LILLY_AND_COMPANY-KR201109002342

PATIENT
  Age: 72 Year
  Sex: Female

DRUGS (6)
  1. HUMALOG MIX 75/25 [Suspect]
     Indication: TYPE 2 DIABETES MELLITUS
     Dosage: 46 U, EACH MORNING
     Route: 058
     Dates: start: 20110601
  2. HUMALOG MIX 75/25 [Suspect]
     Dosage: 30 U, EACH EVENING
     Route: 058
     Dates: start: 20110601
  3. HUMALOG MIX 75/25 [Suspect]
     Dosage: 16 U, EACH MORNING
     Route: 058
     Dates: start: 20110601
  4. HUMALOG MIX 75/25 [Suspect]
     Dosage: 16 U, EACH EVENING
     Route: 058
     Dates: start: 20110601
  5. HUMALOG MIX 75/25 [Suspect]
     Dosage: 20 U, EACH MORNING
     Route: 058
     Dates: start: 20110601
  6. HUMALOG MIX 75/25 [Suspect]
     Dosage: 12 U, EACH EVENING
     Route: 058
     Dates: start: 20110601

REACTIONS (3)
  - BILIARY ABSCESS [None]
  - BILE DUCT CANCER [None]
  - GENERAL PHYSICAL HEALTH DETERIORATION [None]
